FAERS Safety Report 9437916 (Version 1)
Quarter: 2013Q3

REPORT INFORMATION
  Report Type: Spontaneous
  Country: US (occurrence: US)
  Receive Date: 20130802
  Receipt Date: 20130802
  Transmission Date: 20140515
  Serious: No
  Sender: FDA-Public Use
  Company Number: US-BRISTOL-MYERS SQUIBB COMPANY-18885590

PATIENT
  Age: 77 Year
  Sex: Male
  Weight: 70.75 kg

DRUGS (5)
  1. COUMADIN TABS 5 MG [Suspect]
     Dosage: EVERY NIGHT BEFORE BED.
     Dates: start: 201305
  2. UROXATRAL [Concomitant]
  3. ZESTRIL [Concomitant]
  4. AMARYL [Concomitant]
  5. ZOCOR [Concomitant]

REACTIONS (1)
  - Drug dispensing error [Unknown]
